FAERS Safety Report 8052894-9 (Version None)
Quarter: 2012Q1

REPORT INFORMATION
  Report Type: 
  Country: None (occurrence: None)
  Receive Date: 20120118
  Receipt Date: 20120109
  Transmission Date: 20120608
  Serious: Yes (Hospitalization, Other)
  Sender: FDA-Public Use
  Company Number: US-BAYER-2011-032002

PATIENT
  Age: 42 Year
  Sex: Female
  Weight: 51.247 kg

DRUGS (5)
  1. YAZ [Suspect]
     Indication: CONTRACEPTION
  2. CITALOPRAM [Concomitant]
     Indication: DEPRESSION
     Dosage: AS NEEDED
  3. SUMATRIPTAN [Concomitant]
     Indication: MIGRAINE
     Dosage: AS NEEDED
     Route: 048
     Dates: start: 19940801
  4. AMBIEN [Concomitant]
     Indication: INSOMNIA
     Dosage: AS NEEDED
     Route: 048
  5. ALPRAZOLAM [Concomitant]
     Indication: ANXIETY
     Dosage: AS NEEDED
     Route: 048

REACTIONS (5)
  - PAIN [None]
  - INJURY [None]
  - CIRCULATORY COLLAPSE [None]
  - COMPLEX PARTIAL SEIZURES [None]
  - TRANSIENT ISCHAEMIC ATTACK [None]
